FAERS Safety Report 7378256-5 (Version None)
Quarter: 2011Q1

REPORT INFORMATION
  Report Type: 
  Country: None (occurrence: None)
  Receive Date: 20110328
  Receipt Date: 20110317
  Transmission Date: 20110831
  Serious: Yes (Hospitalization)
  Sender: FDA-Public Use
  Company Number: B0708553A

PATIENT
  Sex: Male
  Weight: 68 kg

DRUGS (7)
  1. NO THERAPY-VIIV [Suspect]
     Indication: HIV INFECTION
  2. BEFACT FORTE [Concomitant]
     Dates: start: 20100625
  3. REMERON [Concomitant]
     Route: 048
  4. TRIZIVIR [Suspect]
     Indication: HIV INFECTION
     Dosage: 1TAB TWICE PER DAY
     Route: 048
     Dates: start: 20040512
  5. D-CURE [Concomitant]
     Indication: VITAMIN D DEFICIENCY
     Dates: start: 20100827
  6. DAPSONE [Concomitant]
     Indication: PROPHYLAXIS
  7. KALETRA [Suspect]
     Indication: HIV INFECTION
     Dosage: 2TAB TWICE PER DAY
     Route: 048
     Dates: start: 20040512

REACTIONS (1)
  - EPILEPSY [None]
